FAERS Safety Report 18547403 (Version 2)
Quarter: 2020Q4

REPORT INFORMATION
  Report Type: Report from Study
  Country: None (occurrence: MX)
  Receive Date: 20201126
  Receipt Date: 20201215
  Transmission Date: 20210114
  Serious: Yes (Hospitalization)
  Sender: FDA-Public Use
  Company Number: MX-ABBVIE-20P-107-3664066-00

PATIENT
  Age: 72 Year
  Sex: Female
  Weight: 75 kg

DRUGS (6)
  1. CREON [Suspect]
     Active Substance: PANCRELIPASE AMYLASE\PANCRELIPASE LIPASE\PANCRELIPASE PROTEASE
     Indication: PANCREATITIS CHRONIC
     Dosage: 1 DOSAGE FORMS
     Route: 048
     Dates: start: 20200914
  2. CALCIUM CARBONATE. [Concomitant]
     Active Substance: CALCIUM CARBONATE
     Indication: REFLUX GASTRITIS
  3. MAVIDOL TR [Concomitant]
     Indication: PRODUCT USED FOR UNKNOWN INDICATION
     Route: 060
  4. OMEPRAZOLE. [Concomitant]
     Active Substance: OMEPRAZOLE
     Indication: GASTRITIS
     Route: 048
  5. LEVOTHYROXINE SODIUM;LIOTHYRONINE SODIUM [Concomitant]
     Indication: HYPOTHYROIDISM
     Route: 048
  6. PSIDIUM GUAJAVA LEAF [Concomitant]
     Indication: COLITIS
     Dosage: DAILY DOSE: IN CASE OF STRONG PAIN
     Route: 048

REACTIONS (3)
  - Diarrhoea [Not Recovered/Not Resolved]
  - Drug ineffective [Unknown]
  - Gallbladder operation [Unknown]

NARRATIVE: CASE EVENT DATE: 20201106
